FAERS Safety Report 9195831 (Version 1)
Quarter: 2013Q1

REPORT INFORMATION
  Report Type: Spontaneous
  Country: US (occurrence: None)
  Receive Date: 20120703
  Receipt Date: 20120703
  Transmission Date: 20140127
  Serious: No
  Sender: FDA-Public Use
  Company Number: PHEH2012US010505

PATIENT
  Sex: Male

DRUGS (8)
  1. GILENYA [Suspect]
     Indication: MULTIPLE SCLEROSIS
     Route: 048
  2. CODURAYL [Concomitant]
  3. CYMBALTA (DULOXETINE HYDROCHLORIDE) [Concomitant]
  4. PANTOPRAZOLE (PANTOPRAZOLE) [Concomitant]
  5. TOPAMAX (TOPIRAMATE) [Concomitant]
  6. NEURONTIN (GABAPENTIN) [Concomitant]
  7. GABAPENTIN (GABAPENTIN) [Concomitant]
  8. AROSET [Concomitant]

REACTIONS (2)
  - Eye irritation [None]
  - Lacrimation increased [None]
